FAERS Safety Report 12237812 (Version 1)
Quarter: 2016Q2

REPORT INFORMATION
  Report Type: Spontaneous
  Country: US (occurrence: None)
  Receive Date: 20160404
  Receipt Date: 20160404
  Transmission Date: 20160815
  Serious: Yes (Other)
  Sender: FDA-Public Use
  Company Number: None

PATIENT
  Age: 71 Year
  Sex: Female

DRUGS (1)
  1. FUROSEMIDE TAB 40MG TAB ROXANE [Suspect]
     Active Substance: FUROSEMIDE
     Route: 048
     Dates: start: 20160218

REACTIONS (2)
  - Drug effect delayed [None]
  - Oedema peripheral [None]

NARRATIVE: CASE EVENT DATE: 20160218
